FAERS Safety Report 22243974 (Version 1)
Quarter: 2023Q2

REPORT INFORMATION
  Report Type: Report from Study
  Country: NG (occurrence: NG)
  Receive Date: 20230424
  Receipt Date: 20230424
  Transmission Date: 20230721
  Serious: Yes (Hospitalization)
  Sender: FDA-Public Use
  Company Number: NG-002147023-NVSC2023NG016155

PATIENT
  Age: 38 Year
  Sex: Female
  Weight: 98 kg

DRUGS (1)
  1. SACUBITRIL\VALSARTAN [Suspect]
     Active Substance: SACUBITRIL\VALSARTAN
     Indication: Cardiac failure
     Dosage: UNK, BID (25MG)
     Route: 048

REACTIONS (10)
  - Dysuria [Recovering/Resolving]
  - Palpitations [Recovering/Resolving]
  - Abdominal distension [Recovering/Resolving]
  - Peripheral swelling [Recovering/Resolving]
  - Decreased appetite [Unknown]
  - Dyspnoea [Unknown]
  - Influenza [Unknown]
  - Bacterial infection [Recovered/Resolved]
  - Cough [Unknown]
  - Fatigue [Unknown]

NARRATIVE: CASE EVENT DATE: 20230106
